FAERS Safety Report 4576157-9 (Version None)
Quarter: 2005Q1

REPORT INFORMATION
  Report Type: 
  Country: None (occurrence: None)
  Receive Date: 20050204
  Receipt Date: 20050126
  Transmission Date: 20050727
  Serious: Yes (Life-Threatening, Hospitalization)
  Sender: FDA-Public Use
  Company Number: 2005020730

PATIENT
  Age: 33 Year
  Sex: Male

DRUGS (1)
  1. ZELDOX [Suspect]
     Indication: DEPRESSION
     Dosage: 80 MG, ORAL
     Route: 048
     Dates: start: 20040722, end: 20040804

REACTIONS (2)
  - ATRIOVENTRICULAR BLOCK [None]
  - LEFT VENTRICULAR FAILURE [None]
